FAERS Safety Report 21453739 (Version 2)
Quarter: 2022Q4

REPORT INFORMATION
  Report Type: Spontaneous
  Country: IT (occurrence: IT)
  Receive Date: 20221013
  Receipt Date: 20221028
  Transmission Date: 20230113
  Serious: Yes (Life-Threatening, Hospitalization)
  Sender: FDA-Public Use
  Company Number: IT-TEVA-2022-IT-2816327

PATIENT
  Age: 11 Year
  Sex: Female

DRUGS (16)
  1. LACOSAMIDE [Suspect]
     Active Substance: LACOSAMIDE
     Indication: Febrile infection-related epilepsy syndrome
     Route: 065
  2. PHENOBARBITAL [Suspect]
     Active Substance: PHENOBARBITAL
     Indication: Febrile infection-related epilepsy syndrome
     Route: 065
  3. PHENYTOIN [Suspect]
     Active Substance: PHENYTOIN
     Indication: Febrile infection-related epilepsy syndrome
     Route: 065
  4. PROPOFOL [Suspect]
     Active Substance: PROPOFOL
     Indication: Anaesthesia
     Route: 065
  5. TOPIRAMATE [Suspect]
     Active Substance: TOPIRAMATE
     Indication: Febrile infection-related epilepsy syndrome
     Route: 065
  6. THIOPENTAL [Suspect]
     Active Substance: THIOPENTAL
     Indication: Anaesthesia
     Route: 065
  7. VALPROATE [Suspect]
     Active Substance: VALPROIC ACID
     Indication: Febrile infection-related epilepsy syndrome
     Route: 065
  8. MIDAZOLAM [Suspect]
     Active Substance: MIDAZOLAM
     Indication: Anaesthesia
     Route: 065
  9. KETAMINE [Suspect]
     Active Substance: KETAMINE
     Indication: Anaesthesia
     Route: 065
  10. CANNABIDIOL [Suspect]
     Active Substance: CANNABIDIOL
     Indication: Febrile infection-related epilepsy syndrome
     Route: 065
  11. SULTHIAME [Suspect]
     Active Substance: SULTHIAME
     Indication: Febrile infection-related epilepsy syndrome
     Route: 065
  12. BRIVARACETAM [Suspect]
     Active Substance: BRIVARACETAM
     Indication: Febrile infection-related epilepsy syndrome
     Route: 065
  13. METHYLPREDNISOLONE [Suspect]
     Active Substance: METHYLPREDNISOLONE
     Indication: Encephalitis autoimmune
     Dosage: 1 GRAM DAILY;
     Route: 065
  14. METHYLPREDNISOLONE [Suspect]
     Active Substance: METHYLPREDNISOLONE
     Indication: Evidence based treatment
  15. PRIVIGEN [Suspect]
     Active Substance: HUMAN IMMUNOGLOBULIN G
     Indication: Encephalitis autoimmune
     Route: 042
  16. PRIVIGEN [Suspect]
     Active Substance: HUMAN IMMUNOGLOBULIN G
     Indication: Evidence based treatment

REACTIONS (1)
  - Treatment failure [Unknown]
